FAERS Safety Report 8132283-9 (Version None)
Quarter: 2012Q1

REPORT INFORMATION
  Report Type: 
  Country: None (occurrence: None)
  Receive Date: 20120208
  Receipt Date: 20120124
  Transmission Date: 20120608
  Serious: Yes (Hospitalization)
  Sender: FDA-Public Use
  Company Number: TR-1190192

PATIENT
  Age: 36 Year
  Sex: Male

DRUGS (1)
  1. ALCAINE [Suspect]
     Indication: PAIN
     Dosage: OPHTHALMIC
     Route: 047

REACTIONS (11)
  - DRUG ABUSE [None]
  - HYPOPYON [None]
  - VISUAL ACUITY REDUCED [None]
  - OCULAR HYPERAEMIA [None]
  - AMNIOTIC MEMBRANE GRAFT [None]
  - CORNEAL INFILTRATES [None]
  - CORNEAL THINNING [None]
  - INFECTIOUS CRYSTALLINE KERATOPATHY [None]
  - PHOTOPHOBIA [None]
  - CORNEAL OPACITY [None]
  - ULCERATIVE KERATITIS [None]
